FAERS Safety Report 23110649 (Version 1)
Quarter: 2023Q4

REPORT INFORMATION
  Report Type: Spontaneous
  Country: US (occurrence: None)
  Receive Date: 20231024
  Receipt Date: 20231024
  Transmission Date: 20240110
  Serious: Yes (Hospitalization)
  Sender: FDA-Public Use
  Company Number: None

PATIENT
  Sex: Male

DRUGS (11)
  1. VIGABATRIN [Suspect]
     Active Substance: VIGABATRIN
     Indication: Epilepsy
     Dates: start: 20171219
  2. ACID REDUCER [Concomitant]
  3. ALBUTEROL [Concomitant]
     Active Substance: ALBUTEROL
  4. CETIRIZINE [Concomitant]
     Active Substance: CETIRIZINE HYDROCHLORIDE
  5. CLONAZEP ODT [Concomitant]
  6. CULTURELLE CAP [Concomitant]
  7. EPIDIOLEX SOL [Concomitant]
  8. FIBER TAB [Concomitant]
  9. MIRALAX POW [Concomitant]
  10. MULTIVITAMIN TAB [Concomitant]
  11. TOPIRAMATE [Concomitant]
     Active Substance: TOPIRAMATE

REACTIONS (2)
  - Rhinovirus infection [None]
  - Pneumonia [None]
